FAERS Safety Report 9553356 (Version 1)
Quarter: 2013Q3

REPORT INFORMATION
  Report Type: Spontaneous
  Country: CH (occurrence: CH)
  Receive Date: 20130925
  Receipt Date: 20130925
  Transmission Date: 20140515
  Serious: Yes (Other)
  Sender: FDA-Public Use
  Company Number: PHHY2013CH106269

PATIENT
  Age: 26 Year
  Sex: Female

DRUGS (1)
  1. MYCOPHENOLIC ACID [Suspect]
     Indication: IMMUNOSUPPRESSION

REACTIONS (3)
  - Apoptosis [Unknown]
  - Diarrhoea haemorrhagic [Unknown]
  - Granuloma [Unknown]
